FAERS Safety Report 11782695 (Version 1)
Quarter: 2015Q4

REPORT INFORMATION
  Report Type: Spontaneous
  Country: US (occurrence: US)
  Receive Date: 20151127
  Receipt Date: 20151127
  Transmission Date: 20160305
  Serious: Yes (Hospitalization, Other)
  Sender: FDA-Public Use
  Company Number: US-009507513-1511USA013887

PATIENT
  Sex: Male

DRUGS (3)
  1. VICTOZA [Suspect]
     Active Substance: LIRAGLUTIDE
     Dosage: UNKNOWN
  2. NOVOLOG [Suspect]
     Active Substance: INSULIN ASPART
     Dosage: UNKNOWN
  3. JANUVIA [Suspect]
     Active Substance: SITAGLIPTIN PHOSPHATE
     Dosage: UNKNOWN
     Route: 048

REACTIONS (8)
  - Abdominal pain [Unknown]
  - Blood glucose fluctuation [Unknown]
  - Vomiting [Unknown]
  - Myocardial infarction [Unknown]
  - Coronary artery disease [Unknown]
  - Pancreatitis chronic [Unknown]
  - Nausea [Unknown]
  - Weight decreased [Unknown]
